FAERS Safety Report 25095707 (Version 2)
Quarter: 2025Q2

REPORT INFORMATION
  Report Type: Report from Study
  Country: JP (occurrence: JP)
  Receive Date: 20250319
  Receipt Date: 20250410
  Transmission Date: 20250717
  Serious: Yes (Hospitalization)
  Sender: PFIZER
  Company Number: JP-PFIZER INC-PV202500007983

PATIENT
  Age: 68 Year
  Sex: Male
  Weight: 57 kg

DRUGS (23)
  1. ELRANATAMAB [Suspect]
     Active Substance: ELRANATAMAB
     Indication: Plasma cell myeloma refractory
     Dosage: 12 MG, 1X/DAY
     Route: 058
     Dates: start: 20241002, end: 20241002
  2. ELRANATAMAB [Suspect]
     Active Substance: ELRANATAMAB
     Dosage: 32 MG, 1X/DAY
     Route: 058
     Dates: start: 20241008, end: 20241008
  3. ELRANATAMAB [Suspect]
     Active Substance: ELRANATAMAB
     Dosage: 76 MG, WEEKLY
     Route: 058
     Dates: start: 20241015, end: 20241128
  4. PREDNISOLONE [Concomitant]
     Active Substance: PREDNISOLONE
     Indication: Prophylaxis
     Route: 048
  5. VALACYCLOVIR HYDROCHLORIDE [Concomitant]
     Active Substance: VALACYCLOVIR HYDROCHLORIDE
     Indication: Prophylaxis
     Route: 048
     Dates: start: 20230119
  6. VONOPRAZAN FUMARATE [Concomitant]
     Active Substance: VONOPRAZAN FUMARATE
     Indication: Prophylaxis
     Route: 048
     Dates: start: 20230119
  7. LINAGLIPTIN [Concomitant]
     Active Substance: LINAGLIPTIN
     Indication: Diabetes mellitus
     Route: 048
     Dates: start: 20230406
  8. ENTRESTO [Concomitant]
     Active Substance: SACUBITRIL\VALSARTAN
     Indication: Hypertension
     Route: 048
  9. AZULFIDINE [Concomitant]
     Active Substance: SULFASALAZINE
     Indication: Rheumatoid arthritis
     Route: 048
     Dates: start: 20230323
  10. CALCIUM LACTATE [Concomitant]
     Active Substance: CALCIUM LACTATE
     Indication: Prophylaxis
     Route: 048
     Dates: start: 20240306
  11. FEBUXOSTAT [Concomitant]
     Active Substance: FEBUXOSTAT
     Indication: Prophylaxis
     Route: 048
  12. IGURATIMOD [Concomitant]
     Active Substance: IGURATIMOD
     Indication: Rheumatoid arthritis
     Route: 048
  13. BENIDIPINE [Concomitant]
     Active Substance: BENIDIPINE
     Indication: Hypertension
     Route: 048
  14. BILASTINE [Concomitant]
     Active Substance: BILASTINE
     Indication: Prophylaxis
     Route: 048
     Dates: start: 20230924
  15. ALFACALCIDOL [Concomitant]
     Active Substance: ALFACALCIDOL
     Indication: Prophylaxis
     Route: 048
  16. AMLODIPINE BESYLATE [Concomitant]
     Active Substance: AMLODIPINE BESYLATE
     Indication: Hypertension
     Route: 048
     Dates: start: 20241004
  17. GLYCOSAMINOGLYCANS [Concomitant]
     Active Substance: GLYCOSAMINOGLYCANS
     Indication: Dry skin
     Route: 061
     Dates: start: 20230524
  18. BETAMETHASONE DIPROPIONATE [Concomitant]
     Active Substance: BETAMETHASONE DIPROPIONATE
     Indication: Erythema
     Route: 061
     Dates: start: 20240718
  19. SULFAMETHOXAZOLE\TRIMETHOPRIM [Concomitant]
     Active Substance: SULFAMETHOXAZOLE\TRIMETHOPRIM
     Indication: Prophylaxis
  20. IMMUNE GLOBULIN NOS [Concomitant]
     Active Substance: IMMUNE GLOBULIN NOS
     Indication: Prophylaxis
  21. ACETAMINOPHEN [Concomitant]
     Active Substance: ACETAMINOPHEN
     Indication: Premedication
  22. DIPHENHYDRAMINE [Concomitant]
     Active Substance: DIPHENHYDRAMINE
     Indication: Premedication
  23. DEXAMETHASONE [Concomitant]
     Active Substance: DEXAMETHASONE
     Indication: Premedication

REACTIONS (1)
  - Cytomegalovirus gastroenteritis [Recovered/Resolved]

NARRATIVE: CASE EVENT DATE: 20241205
